FAERS Safety Report 8500888 (Version 2)
Quarter: 2013Q2

REPORT INFORMATION
  Report Type: Spontaneous
  Country: CA (occurrence: CA)
  Receive Date: 20120410
  Receipt Date: 20130502
  Transmission Date: 20140414
  Serious: Yes (Other)
  Sender: FDA-Public Use
  Company Number: CA-JNJFOC-20120315206

PATIENT
  Age: 51 Year
  Sex: Female
  Weight: 58.97 kg

DRUGS (8)
  1. REMICADE [Suspect]
     Indication: CROHN^S DISEASE
     Dosage: 1 DOSE ONLY
     Route: 042
     Dates: start: 20120123, end: 20120123
  2. REMICADE [Suspect]
     Indication: CROHN^S DISEASE
     Route: 042
     Dates: start: 20110321, end: 20111129
  3. IMURAN [Concomitant]
     Indication: CROHN^S DISEASE
     Route: 048
     Dates: start: 20110215, end: 20111018
  4. PREDNISONE [Concomitant]
     Indication: CROHN^S DISEASE
     Dosage: 40.0 MG DOSAGE PRIOR TO 25-JAN-2011
     Route: 065
     Dates: end: 20110125
  5. PREDNISONE [Concomitant]
     Indication: CROHN^S DISEASE
     Dosage: DOSAGE TAPERED TO 5.0 MG ON 03-MAY-2011
     Route: 065
     Dates: start: 20110503
  6. IMIPRAMINE [Concomitant]
     Indication: HEADACHE
     Dosage: EVERY BEDTIME.
     Route: 065
     Dates: start: 20110927
  7. TECTA [Concomitant]
     Indication: DYSPEPSIA
     Route: 065
  8. CODEINE [Concomitant]
     Indication: DIARRHOEA
     Route: 065

REACTIONS (11)
  - Rheumatic fever [Recovered/Resolved]
  - Psoriasis [Recovered/Resolved]
  - Drug ineffective [Unknown]
  - Lower respiratory tract infection [Not Recovered/Not Resolved]
  - Scarlet fever [Not Recovered/Not Resolved]
  - Colon cancer recurrent [Recovered/Resolved]
  - Fatigue [Not Recovered/Not Resolved]
  - Eye infection [Not Recovered/Not Resolved]
  - Fungal infection [Not Recovered/Not Resolved]
  - Thyroid disorder [Not Recovered/Not Resolved]
  - Arthralgia [Not Recovered/Not Resolved]
